FAERS Safety Report 8533538 (Version 2)
Quarter: 2015Q1

REPORT INFORMATION
  Report Type: Spontaneous
  Country: US (occurrence: US)
  Receive Date: 20120427
  Receipt Date: 20150210
  Transmission Date: 20150721
  Serious: No
  Sender: FDA-Public Use
  Company Number: US-GLAXOSMITHKLINE-A0967959A

PATIENT

DRUGS (14)
  1. HORMONES [Concomitant]
     Active Substance: UNSPECIFIED INGREDIENT
  2. PENTASA [Concomitant]
     Active Substance: MESALAMINE
  3. PREDNISONE. [Concomitant]
     Active Substance: PREDNISONE
  4. LISINOPRIL-HYDROCHLOROTHIAZIDE [Concomitant]
     Active Substance: HYDROCHLOROTHIAZIDE\LISINOPRIL
  5. ZOFRAN [Suspect]
     Active Substance: ONDANSETRON HYDROCHLORIDE
     Indication: PRODUCT USED FOR UNKNOWN INDICATION
     Dosage: 4 MG TABLET TWICE PER DAYSTART DATES OF 16 JULY 2007, 02 AUGUST 2011 AND 16 AUGUST 2013 REPORTED
     Route: 065
     Dates: start: 20091002
  6. TOPAMAX [Concomitant]
     Active Substance: TOPIRAMATE
  7. LEVOTHYROXINE [Concomitant]
     Active Substance: LEVOTHYROXINE
  8. ESTRADIOL. [Concomitant]
     Active Substance: ESTRADIOL
  9. PREVACID [Concomitant]
     Active Substance: LANSOPRAZOLE
  10. PROSED DS [Concomitant]
  11. PRISTIQ EXTENDED RELEASE [Concomitant]
     Active Substance: DESVENLAFAXINE SUCCINATE
  12. PROMETHAZINE HCL [Concomitant]
     Active Substance: PROMETHAZINE HYDROCHLORIDE
  13. FIORICET [Concomitant]
     Active Substance: ACETAMINOPHEN\BUTALBITAL\CAFFEINE
  14. VALIUM [Concomitant]
     Active Substance: DIAZEPAM

REACTIONS (7)
  - Dyspepsia [Not Recovered/Not Resolved]
  - Liver function test abnormal [Unknown]
  - Abdominal pain upper [Not Recovered/Not Resolved]
  - Gastrooesophageal reflux disease [Unknown]
  - Malaise [Unknown]
  - Abdominal distension [Unknown]
  - Eructation [Not Recovered/Not Resolved]

NARRATIVE: CASE EVENT DATE: 20081231
